FAERS Safety Report 24617439 (Version 1)
Quarter: 2024Q4

REPORT INFORMATION
  Report Type: Spontaneous
  Country: IT (occurrence: IT)
  Receive Date: 20241114
  Receipt Date: 20241114
  Transmission Date: 20250115
  Serious: Yes (Other)
  Sender: GENMAB
  Company Number: IT-ABBVIE-6001008

PATIENT
  Age: 75 Year
  Sex: Female

DRUGS (1)
  1. EPCORITAMAB [Suspect]
     Active Substance: EPCORITAMAB
     Indication: Product used for unknown indication
     Dosage: 0.8 MILLIGRAM
     Route: 058

REACTIONS (1)
  - Illness [Unknown]
